FAERS Safety Report 4953617-X (Version None)
Quarter: 2006Q1

REPORT INFORMATION
  Report Type: 
  Country: None (occurrence: None)
  Receive Date: 20060324
  Receipt Date: 20051006
  Transmission Date: 20060701
  Serious: Yes (Hospitalization, Disabling)
  Sender: FDA-Public Use
  Company Number: US-MERCK-0510USA05807

PATIENT
  Age: 51 Year
  Sex: Female
  Weight: 46 kg

DRUGS (1)
  1. VIOXX [Suspect]
     Indication: PAIN MANAGEMENT
     Route: 048
     Dates: start: 20000501, end: 20030901

REACTIONS (5)
  - ANXIETY [None]
  - BACK DISORDER [None]
  - DEPRESSION [None]
  - HYPOAESTHESIA [None]
  - ISCHAEMIC STROKE [None]
